FAERS Safety Report 5720644-4 (Version None)
Quarter: 2008Q2

REPORT INFORMATION
  Report Type: 
  Country: None (occurrence: None)
  Receive Date: 20080425
  Receipt Date: 20080425
  Transmission Date: 20081010
  Serious: No
  Sender: FDA-Public Use
  Company Number: None

PATIENT
  Sex: Female
  Weight: 90.7194 kg

DRUGS (1)
  1. CIPRO [Suspect]
     Indication: URINARY TRACT INFECTION
     Dosage: 500 MG DAILY PO
     Route: 048
     Dates: start: 19990711, end: 20050711

REACTIONS (8)
  - ASTHENIA [None]
  - BACTERIAL INFECTION [None]
  - BALANCE DISORDER [None]
  - CALCULUS BLADDER [None]
  - DRUG INEFFECTIVE [None]
  - EAR PAIN [None]
  - PALPITATIONS [None]
  - VISUAL DISTURBANCE [None]
